FAERS Safety Report 23146598 (Version 1)
Quarter: 2023Q4

REPORT INFORMATION
  Report Type: Spontaneous
  Country: CN (occurrence: CN)
  Receive Date: 20231105
  Receipt Date: 20231105
  Transmission Date: 20240110
  Serious: Yes (Hospitalization, Other)
  Sender: FDA-Public Use
  Company Number: CN-EPICPHARMA-CN-2023EPCLIT01712

PATIENT
  Age: 52 Year
  Sex: Male

DRUGS (8)
  1. CARBOPLATIN [Suspect]
     Active Substance: CARBOPLATIN
     Indication: Squamous cell carcinoma of lung
     Dosage: 2 CYCLES ON DAY 2
     Route: 065
  2. ETOPOSIDE [Suspect]
     Active Substance: ETOPOSIDE
     Indication: Squamous cell carcinoma of lung
     Dosage: 2 CYCLES FROM DAY-1 TO DAY-3
     Route: 065
  3. GEMCITABINE [Concomitant]
     Active Substance: GEMCITABINE
     Indication: Squamous cell carcinoma of lung
     Dosage: 2 CYCLES ON DAY-1 AND DAY-8
     Route: 065
  4. CISPLATIN [Concomitant]
     Active Substance: CISPLATIN
     Indication: Squamous cell carcinoma of lung
     Dosage: 2 CYCLES FROM DAY-1 TO DAY-4
     Route: 065
  5. CATEQUENTINIB [Concomitant]
     Active Substance: CATEQUENTINIB
     Indication: Product used for unknown indication
     Dosage: THIRD-LINE FROM DAY-1 TO DAY14
     Route: 065
  6. CAMRELIZUMAB [Concomitant]
     Active Substance: CAMRELIZUMAB
     Indication: Product used for unknown indication
     Dosage: THIRD-LINE ON DAY-1
     Route: 065
  7. CAMRELIZUMAB [Concomitant]
     Active Substance: CAMRELIZUMAB
     Dosage: AFTER THE FIFTH CYCLE ON DAY-1
     Route: 065
  8. PACLITAXEL [Concomitant]
     Active Substance: PACLITAXEL
     Indication: Product used for unknown indication
     Dosage: AFTER THE FIFTH CYCLE ON DAY-1
     Route: 065

REACTIONS (1)
  - Tumour lysis syndrome [Unknown]
